FAERS Safety Report 8674973 (Version 2)
Quarter: 2012Q4

REPORT INFORMATION
  Report Type: 
  Country: US (occurrence: US)
  Receive Date: 20120720
  Receipt Date: 20120904
  Transmission Date: 20130627
  Serious: No
  Sender: FDA-Public Use
  Company Number: US-JNJFOC-20120706124

PATIENT
  Age: 66 Year
  Sex: Female
  Weight: 45.36 kg

DRUGS (2)
  1. BENADRYL ALLERGY DYE-FREE [Suspect]
     Indication: SLEEP DISORDER THERAPY
     Dosage: 1 liquidgel at night before bed
     Route: 048
  2. TREPILINE [Concomitant]
     Indication: MIGRAINE
     Route: 065

REACTIONS (4)
  - Depression [Not Recovered/Not Resolved]
  - Off label use [Unknown]
  - Therapeutic response unexpected [Unknown]
  - Product packaging issue [Unknown]
